FAERS Safety Report 7190313-5 (Version None)
Quarter: 2010Q4

REPORT INFORMATION
  Report Type: 
  Country: None (occurrence: None)
  Receive Date: 20101213
  Receipt Date: 20101202
  Transmission Date: 20110411
  Serious: Yes (Hospitalization, Other)
  Sender: FDA-Public Use
  Company Number: 2009SP029107

PATIENT
  Age: 24 Year
  Sex: Female
  Weight: 55.7924 kg

DRUGS (3)
  1. NUVARING [Suspect]
     Indication: CONTRACEPTION
     Dates: start: 20060701, end: 20071001
  2. EFFEXOR [Concomitant]
  3. AMITRIPTYLINE [Concomitant]

REACTIONS (37)
  - ABDOMINAL PAIN [None]
  - ANAEMIA [None]
  - BLOOD URINE PRESENT [None]
  - BRONCHIAL HYPERREACTIVITY [None]
  - BRONCHITIS [None]
  - CHANGE OF BOWEL HABIT [None]
  - CHEST DISCOMFORT [None]
  - CHEST PAIN [None]
  - CHLAMYDIAL INFECTION [None]
  - COELIAC DISEASE [None]
  - DRUG EXPOSURE BEFORE PREGNANCY [None]
  - DUODENITIS [None]
  - FATIGUE [None]
  - GASTROINTESTINAL HAEMORRHAGE [None]
  - GASTROOESOPHAGEAL REFLUX DISEASE [None]
  - HAEMATURIA [None]
  - IMMUNE SYSTEM DISORDER [None]
  - INCREASED TENDENCY TO BRUISE [None]
  - INTERNATIONAL NORMALISED RATIO INCREASED [None]
  - MELANOCYTIC NAEVUS [None]
  - MENINGITIS VIRAL [None]
  - MENORRHAGIA [None]
  - MIGRAINE [None]
  - MOOD SWINGS [None]
  - MUSCLE SPASMS [None]
  - PANIC ATTACK [None]
  - PLATELET COUNT INCREASED [None]
  - PREGNANCY [None]
  - PROTHROMBIN TIME PROLONGED [None]
  - PULMONARY EMBOLISM [None]
  - PULMONARY INFARCTION [None]
  - RECTAL HAEMORRHAGE [None]
  - SINUS TACHYCARDIA [None]
  - THROMBOSIS [None]
  - TOBACCO ABUSE [None]
  - UNEVALUABLE EVENT [None]
  - VIRAL RASH [None]
